FAERS Safety Report 16326892 (Version 1)
Quarter: 2019Q2

REPORT INFORMATION
  Report Type: Spontaneous
  Country: DE (occurrence: DE)
  Receive Date: 20190517
  Receipt Date: 20190517
  Transmission Date: 20190711
  Serious: Yes (Other)
  Sender: FDA-Public Use
  Company Number: DE-BAUSCH-BL-2019-014547

PATIENT
  Age: 58 Year
  Sex: Male

DRUGS (1)
  1. ELIDEL [Suspect]
     Active Substance: PIMECROLIMUS
     Indication: NEURODERMATITIS
     Dosage: ADMINISTERED ON BOTH ARMS AND DURATION WAS 3 AND HALF DAYS
     Route: 061
     Dates: start: 2003, end: 2003

REACTIONS (4)
  - Neurodermatitis [Unknown]
  - Headache [Unknown]
  - Condition aggravated [Unknown]
  - Dyspnoea [Unknown]

NARRATIVE: CASE EVENT DATE: 2003
